FAERS Safety Report 9390342 (Version 1)
Quarter: 2013Q3

REPORT INFORMATION
  Report Type: Report from Study
  Country: NE (occurrence: NE)
  Receive Date: 20130709
  Receipt Date: 20130709
  Transmission Date: 20140515
  Serious: Yes (Death)
  Sender: FDA-Public Use
  Company Number: NE-ROCHE-1245966

PATIENT
  Sex: 0

DRUGS (1)
  1. CEFTRIAXONE [Suspect]
     Indication: MENINGITIS MENINGOCOCCAL
     Dosage: 100 MG/KG TO A MAXIMUM OF 4 G, ONE DOSE)
     Route: 030

REACTIONS (1)
  - Treatment failure [Fatal]
